FAERS Safety Report 9336324 (Version 2)
Quarter: 2013Q3

REPORT INFORMATION
  Report Type: Spontaneous
  Country: DE (occurrence: DE)
  Receive Date: 20130607
  Receipt Date: 20130701
  Transmission Date: 20140515
  Serious: Yes (Death)
  Sender: FDA-Public Use
  Company Number: DE-JNJFOC-20130601233

PATIENT
  Sex: Female
  Weight: 76 kg

DRUGS (3)
  1. XARELTO [Suspect]
     Indication: CEREBROVASCULAR ACCIDENT PROPHYLAXIS
     Route: 048
     Dates: start: 20130514, end: 20130526
  2. XARELTO [Suspect]
     Indication: ATRIAL FIBRILLATION
     Route: 048
     Dates: start: 20130514, end: 20130526
  3. METOPROLOL [Concomitant]
     Indication: HEART RATE IRREGULAR
     Route: 065
     Dates: start: 20130514

REACTIONS (1)
  - Acute myocardial infarction [Fatal]
